FAERS Safety Report 8117002-4 (Version None)
Quarter: 2012Q1

REPORT INFORMATION
  Report Type: 
  Country: None (occurrence: None)
  Receive Date: 20120206
  Receipt Date: 20120124
  Transmission Date: 20120608
  Serious: Yes (Hospitalization, Other)
  Sender: FDA-Public Use
  Company Number: US-ROCHE-1027283

PATIENT
  Sex: Female
  Weight: 104.42 kg

DRUGS (3)
  1. ADVAIR DISKUS 100/50 [Concomitant]
     Indication: ASTHMA
     Dates: start: 20020807
  2. XOLAIR [Suspect]
     Indication: PRODUCT USED FOR UNKNOWN INDICATION
     Dates: start: 20090101
  3. PROVENTIL [Concomitant]
     Indication: ASTHMA
     Dates: start: 19981111

REACTIONS (4)
  - BLOOD IRON DECREASED [None]
  - CHOLELITHIASIS [None]
  - LUNG NEOPLASM MALIGNANT [None]
  - CARCINOID TUMOUR PULMONARY [None]
